FAERS Safety Report 20082685 (Version 1)
Quarter: 2021Q4

REPORT INFORMATION
  Report Type: Spontaneous
  Country: DE (occurrence: DE)
  Receive Date: 20211117
  Receipt Date: 20211117
  Transmission Date: 20220304
  Serious: Yes (Hospitalization)
  Sender: FDA-Public Use
  Company Number: DE-ADRED-07237-02

PATIENT
  Age: 80 Year
  Sex: Female
  Weight: 64 kg

DRUGS (7)
  1. APIXABAN [Suspect]
     Active Substance: APIXABAN
     Indication: Product used for unknown indication
     Dosage: 5 MG, PAUSE
  2. FENTANYL [Concomitant]
     Active Substance: FENTANYL
     Dosage: 50 ?G, SCHEMA
  3. METOCLOPRAMID                      /00041901/ [Concomitant]
     Dosage: 10 MG, 1-1-1-0
  4. METAMIZOL                          /06276701/ [Concomitant]
     Dosage: 500 MG, 1-1-1-0
  5. CHLORTHALIDONE [Concomitant]
     Active Substance: CHLORTHALIDONE
     Dosage: 25 MG, 1-0-0-0
  6. TORSEMIDE [Concomitant]
     Active Substance: TORSEMIDE
     Dosage: 10 MG, 1-0-0-0
  7. ASPIRIN [Concomitant]
     Active Substance: ASPIRIN
     Dosage: 100 MG, 0-1-0-0

REACTIONS (6)
  - General physical health deterioration [Unknown]
  - Renal impairment [Unknown]
  - Systemic infection [Unknown]
  - Hyponatraemia [Unknown]
  - Urogenital haemorrhage [Unknown]
  - Anaemia [Unknown]
